FAERS Safety Report 17857376 (Version 1)
Quarter: 2020Q2

REPORT INFORMATION
  Report Type: Spontaneous
  Country: US (occurrence: US)
  Receive Date: 20200603
  Receipt Date: 20200603
  Transmission Date: 20200714
  Serious: No
  Sender: FDA-Public Use
  Company Number: US-TEVA-2020-US-1244146

PATIENT
  Age: 69 Year
  Sex: Female

DRUGS (1)
  1. VENLAFAXINE [Suspect]
     Active Substance: VENLAFAXINE HYDROCHLORIDE
     Route: 065

REACTIONS (7)
  - Insomnia [Unknown]
  - Abnormal dreams [Unknown]
  - Feeling jittery [Unknown]
  - Ligament sprain [Unknown]
  - Nervousness [Unknown]
  - Memory impairment [Unknown]
  - Anxiety [Unknown]
